FAERS Safety Report 12051508 (Version 2)
Quarter: 2017Q1

REPORT INFORMATION
  Report Type: Spontaneous
  Country: US (occurrence: US)
  Receive Date: 20160209
  Receipt Date: 20170131
  Transmission Date: 20170428
  Serious: No
  Sender: FDA-Public Use
  Company Number: US-ABBVIE-15P-163-1434806-00

PATIENT
  Sex: Female

DRUGS (1)
  1. HUMIRA [Suspect]
     Active Substance: ADALIMUMAB
     Indication: PRODUCT USED FOR UNKNOWN INDICATION
     Route: 058

REACTIONS (9)
  - Drug effect prolonged [Unknown]
  - Menopause [Unknown]
  - Mood altered [Unknown]
  - Crohn^s disease [Unknown]
  - Feeling hot [Unknown]
  - Peripheral swelling [Unknown]
  - Hot flush [Recovered/Resolved]
  - Rheumatoid arthritis [Unknown]
  - Gait disturbance [Unknown]
